FAERS Safety Report 7282170-3 (Version None)
Quarter: 2011Q1

REPORT INFORMATION
  Report Type: 
  Country: None (occurrence: None)
  Receive Date: 20110209
  Receipt Date: 20110207
  Transmission Date: 20110831
  Serious: Yes (Other)
  Sender: FDA-Public Use
  Company Number: US-SP-2010-07082

PATIENT
  Sex: Male

DRUGS (2)
  1. DOXYCYCLINE [Concomitant]
  2. TUBERSOL [Suspect]
     Indication: TUBERCULIN TEST
     Route: 023
     Dates: start: 20101219, end: 20101219

REACTIONS (3)
  - DYSKINESIA [None]
  - POSTURE ABNORMAL [None]
  - PRESYNCOPE [None]
